FAERS Safety Report 8917180 (Version 4)
Quarter: 2013Q1

REPORT INFORMATION
  Report Type: Spontaneous
  Country: US (occurrence: US)
  Receive Date: 20121120
  Receipt Date: 20130104
  Transmission Date: 20140127
  Serious: Yes (Other)
  Sender: FDA-Public Use
  Company Number: US-PFIZER INC-2012286586

PATIENT
  Age: 40 Year
  Sex: Female

DRUGS (2)
  1. EPIPEN [Suspect]
     Indication: HYPERSENSITIVITY
     Dosage: 1 DF, AS NEEDED
     Dates: start: 20120210
  2. EPIPEN [Suspect]
     Dosage: UNK

REACTIONS (1)
  - Drug ineffective [Unknown]
